FAERS Safety Report 11415957 (Version 1)
Quarter: 2015Q3

REPORT INFORMATION
  Report Type: Spontaneous
  Country: US (occurrence: None)
  Receive Date: 20150824
  Receipt Date: 20150824
  Transmission Date: 20151125
  Serious: No
  Sender: FDA-Public Use
  Company Number: None

PATIENT
  Age: 43 Year
  Sex: Female
  Weight: 71.67 kg

DRUGS (2)
  1. WOMEN^S ONCE A DAY MULTI-VITAMIN [Concomitant]
  2. WOMENS ROGAINE [Suspect]
     Active Substance: MINOXIDIL
     Indication: ALOPECIA
     Route: 061
     Dates: start: 20150712, end: 20150817

REACTIONS (1)
  - Alopecia [None]

NARRATIVE: CASE EVENT DATE: 20150805
